FAERS Safety Report 5373712-3 (Version None)
Quarter: 2007Q2

REPORT INFORMATION
  Report Type: 
  Country: None (occurrence: None)
  Receive Date: 20070628
  Receipt Date: 20070501
  Transmission Date: 20071010
  Serious: Yes (Other)
  Sender: FDA-Public Use
  Company Number: US-PURDUE-USA_2007_0027675

PATIENT
  Sex: Male
  Weight: 102 kg

DRUGS (5)
  1. OXYCONTIN [Suspect]
     Indication: LEG AMPUTATION
     Dosage: 10 MG, SEE TEXT
     Dates: start: 20000317, end: 20010701
  2. WARFARIN SODIUM [Concomitant]
     Dosage: 5 MG, DAILY
  3. ALPRAZOLAM [Concomitant]
     Dosage: 1 TABLET, TID
  4. OXYIR CAPSULES 5 MG [Concomitant]
     Indication: BREAKTHROUGH PAIN
     Dosage: 3 TABLET, DAILY
  5. OXYCODONE HCL [Concomitant]
     Indication: BREAKTHROUGH PAIN
     Dosage: 10 MG, DAILY

REACTIONS (13)
  - AGGRESSION [None]
  - ANGER [None]
  - DEPRESSION [None]
  - DRUG DEPENDENCE [None]
  - DRUG WITHDRAWAL SYNDROME [None]
  - DYSGEUSIA [None]
  - HYPERHIDROSIS [None]
  - MOOD SWINGS [None]
  - PAROSMIA [None]
  - ROAD TRAFFIC ACCIDENT [None]
  - SOCIAL AVOIDANT BEHAVIOUR [None]
  - SPOUSAL ABUSE [None]
  - SUICIDAL IDEATION [None]
